FAERS Safety Report 5583806-5 (Version None)
Quarter: 2008Q1

REPORT INFORMATION
  Report Type: 
  Country: None (occurrence: None)
  Receive Date: 20080108
  Receipt Date: 20071228
  Transmission Date: 20080703
  Serious: Yes (Other)
  Sender: FDA-Public Use
  Company Number: JP-JNJFOC-20071206232

PATIENT
  Age: 30 Year
  Sex: Male

DRUGS (18)
  1. ITRIZOLE [Suspect]
     Indication: DRUG USE FOR UNKNOWN INDICATION
     Route: 048
  2. PROMETHAZINE [Concomitant]
     Route: 065
  3. ALESION [Concomitant]
     Route: 065
  4. DEPAKENE [Concomitant]
     Route: 065
  5. CYANOCOBALAMIN [Concomitant]
     Route: 065
  6. FOLIAMIN [Concomitant]
     Route: 048
  7. VITAMEDIN [Concomitant]
     Route: 048
  8. JUVELAN [Concomitant]
     Route: 048
  9. HYTHIOL [Concomitant]
     Route: 065
  10. ANAFRANIL [Concomitant]
     Route: 065
  11. ANAFRANIL [Concomitant]
     Route: 065
  12. TOLEDOMIN [Concomitant]
     Route: 065
  13. LOPRESSOR [Concomitant]
     Route: 065
  14. TRYPTANOL [Concomitant]
     Route: 065
  15. DEPAS [Concomitant]
     Route: 065
  16. BRUFEN [Concomitant]
     Route: 065
  17. RISPERDAL [Concomitant]
     Route: 048
  18. GLYSENNID [Concomitant]
     Route: 065

REACTIONS (1)
  - CONVULSION [None]
